FAERS Safety Report 12805539 (Version 1)
Quarter: 2016Q4

REPORT INFORMATION
  Report Type: Spontaneous
  Country: US (occurrence: US)
  Receive Date: 20161002
  Receipt Date: 20161002
  Transmission Date: 20170207
  Serious: Yes (Other)
  Sender: FDA-Public Use
  Company Number: None

PATIENT
  Age: 57 Year
  Sex: Female
  Weight: 60.75 kg

DRUGS (4)
  1. MULTI GUMMY VITAMIN [Concomitant]
  2. CITRACAL CALCIUM [Concomitant]
  3. RESTASIS [Suspect]
     Active Substance: CYCLOSPORINE
     Indication: DRY EYE
     Dosage: OTHER TWICE A DAY OPHTHALMIC
     Route: 047
     Dates: start: 20160716, end: 20160928
  4. ESTRACE [Concomitant]
     Active Substance: ESTRADIOL

REACTIONS (2)
  - Ear pruritus [None]
  - Alopecia [None]

NARRATIVE: CASE EVENT DATE: 20160928
